FAERS Safety Report 9521205 (Version 1)
Quarter: 2013Q1

REPORT INFORMATION
  Report Type: Spontaneous
  Country: US (occurrence: None)
  Receive Date: 20130305
  Receipt Date: 20130305
  Transmission Date: 20140127
  Serious: Yes (Hospitalization, Other)
  Sender: FDA-Public Use
  Company Number: 163-21880-12062279

PATIENT
  Age: 69 Year
  Sex: Male
  Weight: 66.68 kg

DRUGS (4)
  1. REVLIMID [Suspect]
     Indication: PLASMA CELL MYELOMA
     Dosage: 25 MG, 1 IN 1 D, PO
     Route: 048
     Dates: start: 201110
  2. VITAMIN B12 (CYANOCOBALAMIN) (UNKNOWN) [Concomitant]
  3. MULTIVITAMINS (MULTIVITAMINS) (UNKNOWN) [Concomitant]
  4. VITAMIN A (RETINOL) (UNKNOWN) [Concomitant]

REACTIONS (4)
  - Deep vein thrombosis [None]
  - Blood glucose increased [None]
  - Neuropathy peripheral [None]
  - Rash [None]
